FAERS Safety Report 12463492 (Version 1)
Quarter: 2016Q2

REPORT INFORMATION
  Report Type: Spontaneous
  Country: US (occurrence: None)
  Receive Date: 20160613
  Receipt Date: 20160613
  Transmission Date: 20160815
  Serious: Yes (Other)
  Sender: FDA-Public Use
  Company Number: None

PATIENT
  Age: 33 Year
  Sex: Female
  Weight: 58.97 kg

DRUGS (2)
  1. SINGULAIR [Suspect]
     Active Substance: MONTELUKAST SODIUM
     Indication: MULTIPLE ALLERGIES
     Route: 048
  2. SINGULAIR [Suspect]
     Active Substance: MONTELUKAST SODIUM
     Indication: ASTHMA
     Route: 048

REACTIONS (15)
  - Disturbance in attention [None]
  - Discomfort [None]
  - Headache [None]
  - Asthenia [None]
  - Malaise [None]
  - Abnormal dreams [None]
  - Anxiety [None]
  - Insomnia [None]
  - Somnolence [None]
  - Sinusitis [None]
  - Pharyngitis streptococcal [None]
  - Depressed mood [None]
  - Fatigue [None]
  - Agitation [None]
  - Nasal congestion [None]

NARRATIVE: CASE EVENT DATE: 20160105
